FAERS Safety Report 9227125 (Version 2)
Quarter: 2013Q2

REPORT INFORMATION
  Report Type: Report from Study
  Country: US (occurrence: US)
  Receive Date: 20130412
  Receipt Date: 20130506
  Transmission Date: 20140414
  Serious: Yes (Hospitalization, Other)
  Sender: FDA-Public Use
  Company Number: US-JNJFOC-20130401846

PATIENT
  Sex: Female

DRUGS (3)
  1. REMICADE [Suspect]
     Indication: CROHN^S DISEASE
     Route: 042
  2. REMICADE [Suspect]
     Indication: CROHN^S DISEASE
     Route: 042
     Dates: start: 20130328
  3. BENADRYL [Concomitant]
     Indication: PROPHYLAXIS
     Route: 042
     Dates: start: 20130328

REACTIONS (8)
  - Dehydration [Recovering/Resolving]
  - Fatigue [Recovering/Resolving]
  - Pyrexia [Recovering/Resolving]
  - Hospitalisation [Unknown]
  - Diarrhoea [Unknown]
  - Drug ineffective [Unknown]
  - Depression [Unknown]
  - Night sweats [Unknown]
